FAERS Safety Report 5796928-0 (Version None)
Quarter: 2008Q3

REPORT INFORMATION
  Report Type: 
  Country: None (occurrence: None)
  Receive Date: 20080701
  Receipt Date: 20080620
  Transmission Date: 20090109
  Serious: Yes (Other)
  Sender: FDA-Public Use
  Company Number: BR-JNJFOC-20080605618

PATIENT
  Sex: Female
  Weight: 60 kg

DRUGS (5)
  1. TOPAMAX [Suspect]
  2. TOPAMAX [Suspect]
  3. TOPAMAX [Suspect]
  4. TOPAMAX [Suspect]
     Indication: ANXIETY
  5. UNSPECIFIED MEDICATION [Concomitant]
     Indication: SMOKING CESSATION THERAPY

REACTIONS (4)
  - CONFUSIONAL STATE [None]
  - DISTURBANCE IN ATTENTION [None]
  - NODULE [None]
  - ROAD TRAFFIC ACCIDENT [None]
